FAERS Safety Report 5615097-0 (Version None)
Quarter: 2008Q1

REPORT INFORMATION
  Report Type: 
  Country: None (occurrence: None)
  Receive Date: 20080206
  Receipt Date: 20070430
  Transmission Date: 20080703
  Serious: No
  Sender: FDA-Public Use
  Company Number: A0645413A

PATIENT
  Age: 66 Year
  Sex: Male

DRUGS (9)
  1. ARIXTRA [Suspect]
     Dosage: 2.5MG PER DAY
     Route: 058
     Dates: start: 20070327, end: 20070407
  2. JANUVIA [Suspect]
     Dosage: 100MG PER DAY
     Route: 048
     Dates: start: 20070101
  3. COREG [Concomitant]
  4. ALPRAZOLAM [Concomitant]
  5. GLUCOPHAGE XR [Concomitant]
  6. MAXZIDE-25 [Concomitant]
  7. NORVASC [Concomitant]
  8. ZANTAC [Concomitant]
  9. UNKNOWN MEDICATION [Concomitant]

REACTIONS (11)
  - AGITATION [None]
  - BLISTER [None]
  - BURNING SENSATION [None]
  - CONTUSION [None]
  - ERYTHEMA [None]
  - HAEMATOMA [None]
  - ILL-DEFINED DISORDER [None]
  - JOINT SWELLING [None]
  - PAIN [None]
  - PYREXIA [None]
  - SKIN DISCOLOURATION [None]
